FAERS Safety Report 5333890-9 (Version None)
Quarter: 2007Q2

REPORT INFORMATION
  Report Type: 
  Country: None (occurrence: None)
  Receive Date: 20070521
  Receipt Date: 20070511
  Transmission Date: 20071010
  Serious: Yes (Hospitalization)
  Sender: FDA-Public Use
  Company Number: S07-USA-02053-01

PATIENT
  Age: 43 Year
  Sex: Female
  Weight: 83.9154 kg

DRUGS (2)
  1. LEXAPRO [Suspect]
     Dates: start: 20061019
  2. REMICADE [Suspect]
     Indication: CROHN'S DISEASE
     Dates: start: 20061012

REACTIONS (3)
  - ARTHRALGIA [None]
  - SENSATION OF HEAVINESS [None]
  - SYNCOPE [None]
